FAERS Safety Report 4515349-1 (Version None)
Quarter: 2004Q4

REPORT INFORMATION
  Report Type: 
  Country: None (occurrence: None)
  Receive Date: 20041029
  Receipt Date: 20040924
  Transmission Date: 20050328
  Serious: No
  Sender: FDA-Public Use
  Company Number: 200416816US

PATIENT
  Age: 39 Year
  Sex: Female

DRUGS (3)
  1. KETEK [Suspect]
     Indication: SINUSITIS
     Dosage: 400 MG, BID, PO
     Route: 048
     Dates: start: 20040902, end: 20040906
  2. PSEUDOEPHEDRINE HYDROCHLORIDE [Concomitant]
  3. GUAIFENESIN (DURATUSS) [Concomitant]

REACTIONS (2)
  - VISION BLURRED [None]
  - VISUAL DISTURBANCE [None]
